FAERS Safety Report 10243763 (Version 1)
Quarter: 2014Q2

REPORT INFORMATION
  Report Type: Spontaneous
  Country: DK (occurrence: FR)
  Receive Date: 20140618
  Receipt Date: 20140618
  Transmission Date: 20141212
  Serious: Yes (Life-Threatening, Hospitalization)
  Sender: FDA-Public Use
  Company Number: FR-FRI-1000068206

PATIENT
  Age: 49 Year
  Sex: Male

DRUGS (11)
  1. ESCITALOPRAM [Suspect]
     Route: 048
  2. ESCITALOPRAM [Suspect]
     Dosage: OVERDOSE OF 630 MG ONCE
     Route: 048
  3. SIMVASTATINE [Suspect]
     Route: 048
  4. SIMVASTATINE [Suspect]
     Dosage: OVERDOSE OF 400 MG ONCE
     Route: 048
  5. ZOPICLONE [Suspect]
     Route: 048
  6. ZOPICLONE [Suspect]
     Dosage: OVERDOSE OF 210 MG ONCE
     Route: 048
  7. VALIUM [Suspect]
     Route: 048
  8. VALIUM [Suspect]
     Dosage: OVERDOSE BETWEEN 40 TO 200 MG ONCE
     Route: 048
  9. COVERSYL [Suspect]
     Route: 048
  10. COVERSYL [Suspect]
     Dosage: OVERDOSE OF 550 MG ONCE
     Route: 048
  11. ZOLPIDEM [Suspect]
     Route: 048

REACTIONS (4)
  - Coma [Recovered/Resolved]
  - Vasoplegia syndrome [Recovered/Resolved]
  - Bradycardia [Recovered/Resolved]
  - Overdose [Recovered/Resolved]
